FAERS Safety Report 9988912 (Version 1)
Quarter: 2014Q1

REPORT INFORMATION
  Report Type: Report from Study
  Country: US (occurrence: US)
  Receive Date: 20140310
  Receipt Date: 20140310
  Transmission Date: 20141002
  Serious: No
  Sender: FDA-Public Use
  Company Number: US-ABBVIE-13P-163-1128978-00

PATIENT
  Age: 36 Year
  Sex: Female

DRUGS (6)
  1. HUMIRA [Suspect]
     Indication: ANKYLOSING SPONDYLITIS
     Dates: end: 201306
  2. LYRICA [Concomitant]
     Indication: FIBROMYALGIA
  3. BUSPAR [Concomitant]
     Indication: ANXIETY
  4. CYMBALTA [Concomitant]
     Indication: ANXIETY
     Dosage: BEDTIME
  5. CYMBALTA [Concomitant]
     Indication: ANKYLOSING SPONDYLITIS
  6. ZOLPIDEM [Concomitant]
     Indication: INSOMNIA
     Dosage: 5-10MG AS NEEDED

REACTIONS (4)
  - Tendon injury [Not Recovered/Not Resolved]
  - Injection site urticaria [Recovered/Resolved]
  - Injection site pain [Recovered/Resolved]
  - Injection site pruritus [Recovered/Resolved]
